FAERS Safety Report 5009290-8 (Version None)
Quarter: 2006Q2

REPORT INFORMATION
  Report Type: 
  Country: None (occurrence: None)
  Receive Date: 20060522
  Receipt Date: 20060511
  Transmission Date: 20061013
  Serious: Yes (Other)
  Sender: FDA-Public Use
  Company Number: 2006024815

PATIENT
  Sex: Male
  Weight: 81.6475 kg

DRUGS (4)
  1. VIAGRA [Suspect]
     Indication: ERECTILE DYSFUNCTION
     Dates: start: 20050101
  2. CIALIS [Suspect]
     Indication: ILL-DEFINED DISORDER
  3. MICARDIS [Concomitant]
  4. PREVACID [Concomitant]

REACTIONS (2)
  - BUNDLE BRANCH BLOCK RIGHT [None]
  - VENTRICULAR DYSFUNCTION [None]
